FAERS Safety Report 25488299 (Version 5)
Quarter: 2025Q3

REPORT INFORMATION
  Report Type: Spontaneous
  Country: CA (occurrence: CA)
  Receive Date: 20250627
  Receipt Date: 20250903
  Transmission Date: 20251020
  Serious: Yes (Other)
  Sender: CELLTRION
  Company Number: CA-CELLTRION INC.-2025CA014912

PATIENT

DRUGS (7)
  1. STEQEYMA [Suspect]
     Active Substance: USTEKINUMAB-STBA
     Indication: Crohn^s disease
     Route: 042
  2. STEQEYMA [Suspect]
     Active Substance: USTEKINUMAB-STBA
     Dosage: 90MG/Q4 WEEKS
     Route: 042
     Dates: start: 20250509
  3. STEQEYMA [Suspect]
     Active Substance: USTEKINUMAB-STBA
     Indication: Crohn^s disease
     Dosage: 90MG/Q4 WEEKS
     Route: 058
     Dates: start: 20250509
  4. STEQEYMA [Suspect]
     Active Substance: USTEKINUMAB-STBA
     Indication: Colitis ulcerative
     Dosage: STEQEYMA - MAINTENANCE - 90 MG - SC (SUBCUTANEOUS) EVERY 4 WEEKS
     Route: 058
     Dates: start: 20250509
  5. STEQEYMA [Suspect]
     Active Substance: USTEKINUMAB-STBA
     Dosage: MAINTENANCE - 90 MG - SC (SUBCUTANEOUS) EVERY 4 WEEKS
     Route: 058
     Dates: start: 20250710
  6. STEQEYMA [Suspect]
     Active Substance: USTEKINUMAB-STBA
     Dosage: MAINTENANCE - 90 MG - SC (SUBCUTANEOUS) EVERY 4 WEEKS
     Route: 058
     Dates: start: 20250509, end: 20250826
  7. STEQEYMA [Suspect]
     Active Substance: USTEKINUMAB-STBA
     Dosage: 90MG EVERY 4 WEEKS
     Route: 058
     Dates: start: 20250509

REACTIONS (7)
  - Crohn^s disease [Not Recovered/Not Resolved]
  - Malaise [Unknown]
  - Intentional product use issue [Unknown]
  - Intentional product use issue [Unknown]
  - Inappropriate schedule of product administration [Unknown]
  - Off label use [Unknown]
  - Therapy change [Unknown]

NARRATIVE: CASE EVENT DATE: 20250101
